FAERS Safety Report 16962211 (Version 2)
Quarter: 2020Q1

REPORT INFORMATION
  Report Type: Spontaneous
  Country: GR (occurrence: GR)
  Receive Date: 20191025
  Receipt Date: 20200116
  Transmission Date: 20200409
  Serious: Yes (Hospitalization)
  Sender: FDA-Public Use
  Company Number: GR-CHIESI USA, INC.-GR-2019CHI000403

PATIENT

DRUGS (5)
  1. CEFOTAXIME                         /00497602/ [Suspect]
     Active Substance: CEFOTAXIME SODIUM
     Indication: PANTOEA AGGLOMERANS INFECTION
     Dosage: UNK
     Route: 065
  2. TOBRAMYCIN. [Suspect]
     Active Substance: TOBRAMYCIN
     Indication: PANTOEA AGGLOMERANS INFECTION
     Dosage: UNK
     Route: 042
  3. GLUCOSE [Concomitant]
     Active Substance: DEXTROSE
     Indication: PRODUCT USED FOR UNKNOWN INDICATION
     Dosage: UNK
  4. AMPICILLIN                         /00000502/ [Suspect]
     Active Substance: AMPICILLIN
     Indication: PANTOEA AGGLOMERANS INFECTION
     Dosage: UNK
     Route: 065
  5. DOPAMINE                           /00360702/ [Concomitant]
     Indication: PRODUCT USED FOR UNKNOWN INDICATION
     Dosage: UNK

REACTIONS (10)
  - Inflammatory marker increased [Recovered/Resolved]
  - Pantoea agglomerans infection [Recovered/Resolved]
  - Thrombocytopenia neonatal [Recovered/Resolved]
  - Fever neonatal [Recovered/Resolved]
  - Hyperbilirubinaemia neonatal [Recovered/Resolved]
  - Pleocytosis [Recovered/Resolved]
  - Respiratory disorder neonatal [Recovered/Resolved]
  - Leukocytosis [Recovered/Resolved]
  - Hepatosplenomegaly neonatal [Recovered/Resolved]
  - Drug ineffective [Unknown]
